FAERS Safety Report 12231092 (Version 3)
Quarter: 2016Q2

REPORT INFORMATION
  Report Type: Report from Study
  Country: GB (occurrence: GB)
  Receive Date: 20160401
  Receipt Date: 20160425
  Transmission Date: 20160815
  Serious: Yes (Life-Threatening, Hospitalization)
  Sender: FDA-Public Use
  Company Number: PHHY2016GB023623

PATIENT
  Age: 14 Year
  Sex: Male

DRUGS (4)
  1. AFINITOR [Suspect]
     Active Substance: EVEROLIMUS
     Indication: EPILEPSY
     Dosage: CODE NOT BROKEN
     Route: 048
     Dates: start: 20141114, end: 20141130
  2. BLINDED PLACEBO [Suspect]
     Active Substance: INVESTIGATIONAL PRODUCT
     Indication: EPILEPSY
     Dosage: CODE NOT BROKEN
     Route: 048
     Dates: start: 20141114, end: 20141130
  3. BLINDED NO TREATMENT RECEIVED [Suspect]
     Active Substance: INVESTIGATIONAL PRODUCT
     Indication: EPILEPSY
     Dosage: CODE NOT BROKEN
     Route: 048
     Dates: start: 20141114, end: 20141130
  4. RAD001 [Suspect]
     Active Substance: EVEROLIMUS
     Indication: EPILEPSY
     Dosage: 18 MG, UNK
     Route: 048
     Dates: start: 20150323, end: 20160210

REACTIONS (5)
  - Seizure [Recovered/Resolved]
  - Intestinal ischaemia [Recovered/Resolved with Sequelae]
  - Abdominal distension [Recovered/Resolved]
  - Cardiac arrest [Recovered/Resolved]
  - Gastric ileus [Recovered/Resolved with Sequelae]

NARRATIVE: CASE EVENT DATE: 20160210
